FAERS Safety Report 7282649-4 (Version None)
Quarter: 2011Q1

REPORT INFORMATION
  Report Type: 
  Country: None (occurrence: None)
  Receive Date: 20110127
  Receipt Date: 20101211
  Transmission Date: 20110831
  Serious: No
  Sender: FDA-Public Use
  Company Number: 2010-01045

PATIENT
  Age: 54 Year
  Sex: Male
  Weight: 105.6881 kg

DRUGS (8)
  1. TRICOR [Concomitant]
  2. SYMBICORT [Concomitant]
  3. ZICAM COLD REMEDY ZAVORS [Suspect]
     Dosage: TID X 4 DAYS;
     Dates: start: 20101201, end: 20101204
  4. VITAMIN D [Concomitant]
  5. JANUVIA [Concomitant]
  6. LISINOPRIL [Concomitant]
  7. METFORMIN [Concomitant]
  8. VITAMIN B [Concomitant]

REACTIONS (3)
  - ANOSMIA [None]
  - AGEUSIA [None]
  - PITUITARY TUMOUR [None]
